FAERS Safety Report 22138833 (Version 2)
Quarter: 2024Q2

REPORT INFORMATION
  Report Type: Spontaneous
  Country: CN (occurrence: CN)
  Receive Date: 20230327
  Receipt Date: 20240404
  Transmission Date: 20240716
  Serious: Yes (Hospitalization)
  Sender: FDA-Public Use
  Company Number: CN-AMGEN-CHNSP2023047937

PATIENT
  Age: 70 Year
  Sex: Female

DRUGS (4)
  1. PROLIA [Suspect]
     Active Substance: DENOSUMAB
     Indication: Product used for unknown indication
     Dosage: UNK
     Route: 065
  2. CINACALCET HYDROCHLORIDE [Suspect]
     Active Substance: CINACALCET HYDROCHLORIDE
     Indication: Hypercalcaemia
     Dosage: UNK
     Route: 065
  3. CALCITONIN SALMON [Concomitant]
     Active Substance: CALCITONIN SALMON
     Dosage: UNK
  4. UNSPECIFIED INGREDIENT [Concomitant]
     Active Substance: UNSPECIFIED INGREDIENT
     Indication: Anticoagulant therapy
     Dosage: UNK

REACTIONS (20)
  - Pericardial effusion [Recovered/Resolved]
  - Splenic infarction [Recovered/Resolved]
  - Tricuspid valve incompetence [Recovered/Resolved]
  - Parathyroid tumour [Recovered/Resolved]
  - Haematochezia [Recovered/Resolved]
  - Septic shock [Recovered/Resolved]
  - Anal ulcer haemorrhage [Recovered/Resolved]
  - Pneumonitis [Recovered/Resolved]
  - Renal failure [Recovered/Resolved]
  - Parathyroid disorder [Recovered/Resolved]
  - Left ventricular dysfunction [Recovered/Resolved]
  - Pleural effusion [Recovered/Resolved]
  - Atelectasis [Recovered/Resolved]
  - Aortic dilatation [Recovered/Resolved]
  - Left ventricular hypertrophy [Recovered/Resolved]
  - Infrequent bowel movements [Recovered/Resolved]
  - Haemoglobin decreased [Recovered/Resolved]
  - Chronic gastritis [Recovered/Resolved]
  - Thyroid calcification [Recovered/Resolved]
  - Blood calcium decreased [Recovered/Resolved]
